FAERS Safety Report 23745223 (Version 1)
Quarter: 2024Q2

REPORT INFORMATION
  Report Type: Spontaneous
  Country: DE (occurrence: DE)
  Receive Date: 20240416
  Receipt Date: 20240416
  Transmission Date: 20240715
  Serious: Yes (Hospitalization, Other)
  Sender: FDA-Public Use
  Company Number: DE-BRISTOL-MYERS SQUIBB COMPANY-2024-057217

PATIENT
  Age: 64 Year
  Sex: Female
  Weight: 70 kg

DRUGS (5)
  1. NIVOLUMAB [Suspect]
     Active Substance: NIVOLUMAB
     Indication: Metastatic malignant melanoma
     Dosage: 4 CYCLES OF IMMUNOTHERAPY
     Route: 042
     Dates: start: 202101, end: 202103
  2. NIVOLUMAB [Suspect]
     Active Substance: NIVOLUMAB
     Dosage: 8 CYCLES NIVOLUMAB FLAT DOSE 480 MG EVERY FOUR WEEKS
     Route: 042
     Dates: start: 202104, end: 202111
  3. NIVOLUMAB [Suspect]
     Active Substance: NIVOLUMAB
     Dosage: 3 CYCLES OF IMMUNOTHERAPY
     Route: 042
     Dates: start: 202112, end: 202202
  4. IPILIMUMAB [Suspect]
     Active Substance: IPILIMUMAB
     Indication: Metastatic malignant melanoma
     Dosage: 4 CYCLES OF IMMUNOTHERAPY
     Route: 042
     Dates: start: 202101, end: 202103
  5. IPILIMUMAB [Suspect]
     Active Substance: IPILIMUMAB
     Dosage: 4 CYCLES OF IMMUNOTHERAPY
     Route: 042
     Dates: start: 202112, end: 202202

REACTIONS (1)
  - Autoimmune haemolytic anaemia [Recovered/Resolved]

NARRATIVE: CASE EVENT DATE: 20220201
